FAERS Safety Report 15250749 (Version 1)
Quarter: 2018Q3

REPORT INFORMATION
  Report Type: Spontaneous
  Country: SA (occurrence: SA)
  Receive Date: 20180807
  Receipt Date: 20180807
  Transmission Date: 20181010
  Serious: Yes (Death, Other)
  Sender: FDA-Public Use
  Company Number: PHHY2018SA061181

PATIENT
  Age: 76 Year
  Sex: Male

DRUGS (2)
  1. ETANERCEPT [Suspect]
     Active Substance: ETANERCEPT
     Dosage: 50 MG, QW (ONCE A WEEK FOR ANOTHER 6 MONTHS)
     Route: 058
  2. ETANERCEPT [Suspect]
     Active Substance: ETANERCEPT
     Indication: PSORIASIS
     Dosage: 50 MG, QW2 (50 MG TWICE A WEEK FOR 6 MONTHS)
     Route: 058

REACTIONS (6)
  - Shock [Unknown]
  - Ecchymosis [Unknown]
  - Lower gastrointestinal haemorrhage [Unknown]
  - Cardio-respiratory arrest [Fatal]
  - Myelodysplastic syndrome [Unknown]
  - Epistaxis [Unknown]
